APPROVED DRUG PRODUCT: PROMETHAZINE HYDROCHLORIDE
Active Ingredient: PROMETHAZINE HYDROCHLORIDE
Strength: 6.25MG/5ML
Dosage Form/Route: SYRUP;ORAL
Application: A040891 | Product #001 | TE Code: AA
Applicant: STRIDES PHARMA GLOBAL PTE LTD
Approved: Mar 13, 2009 | RLD: No | RS: No | Type: RX